FAERS Safety Report 7649853-4 (Version None)
Quarter: 2011Q3

REPORT INFORMATION
  Report Type: 
  Country: None (occurrence: None)
  Receive Date: 20110802
  Receipt Date: 20110718
  Transmission Date: 20111222
  Serious: Yes (Hospitalization)
  Sender: FDA-Public Use
  Company Number: IT-ALVOGEN-2011AL000038

PATIENT
  Sex: Female

DRUGS (1)
  1. NITROFURANTOIN [Suspect]
     Indication: URINARY TRACT INFECTION
     Route: 048
     Dates: start: 20110529, end: 20110529

REACTIONS (6)
  - HYPOTENSION [None]
  - PRURITUS [None]
  - HYPERHIDROSIS [None]
  - ABDOMINAL PAIN [None]
  - URTICARIA [None]
  - PALPITATIONS [None]
